FAERS Safety Report 8866458 (Version 1)
Quarter: 2012Q4

REPORT INFORMATION
  Report Type: 
  Country: US (occurrence: US)
  Receive Date: 20121025
  Receipt Date: 20121025
  Transmission Date: 20130627
  Serious: No
  Sender: FDA-Public Use
  Company Number: US-009507513-1210USA009923

PATIENT

DRUGS (3)
  1. BOCEPREVIR [Suspect]
     Route: 048
  2. RIBAVIRIN [Suspect]
     Route: 048
  3. PEGINTRON [Suspect]

REACTIONS (1)
  - Deep vein thrombosis [Unknown]
